FAERS Safety Report 18592865 (Version 1)
Quarter: 2020Q4

REPORT INFORMATION
  Report Type: Spontaneous
  Country: IN (occurrence: IN)
  Receive Date: 20201209
  Receipt Date: 20201209
  Transmission Date: 20210114
  Serious: Yes (Hospitalization)
  Sender: FDA-Public Use
  Company Number: IN-LUPIN PHARMACEUTICALS INC.-2020-09977

PATIENT
  Age: 28 Year
  Sex: Female

DRUGS (3)
  1. VORICONAZOLE. [Suspect]
     Active Substance: VORICONAZOLE
     Indication: MENINGITIS ASPERGILLUS
     Dosage: UNK
     Route: 065
  2. DEXAMETHASONE. [Concomitant]
     Active Substance: DEXAMETHASONE
     Indication: SYMPTOMATIC TREATMENT
     Dosage: UNK (HIGH-DOSE)
     Route: 065
  3. AMPHOTERICIN-B [Suspect]
     Active Substance: AMPHOTERICIN B
     Indication: MENINGITIS ASPERGILLUS
     Dosage: UNK

REACTIONS (1)
  - Drug ineffective [Unknown]
